FAERS Safety Report 6952229-6 (Version None)
Quarter: 2010Q3

REPORT INFORMATION
  Report Type: 
  Country: None (occurrence: None)
  Receive Date: 20100829
  Receipt Date: 20100615
  Transmission Date: 20110219
  Serious: No
  Sender: FDA-Public Use
  Company Number: US-ABBOTT-10P-163-0628392-00

PATIENT
  Sex: Female
  Weight: 65.83 kg

DRUGS (12)
  1. NIASPAN [Suspect]
     Indication: BLOOD CHOLESTEROL
     Dosage: AT BEDTIME
     Dates: start: 20100108, end: 20100205
  2. NIASPAN [Suspect]
     Dosage: AT BEDTIME
     Dates: start: 20100205, end: 20100215
  3. LIPITOR [Concomitant]
     Indication: PRODUCT USED FOR UNKNOWN INDICATION
  4. METOPROLOL [Concomitant]
     Indication: PRODUCT USED FOR UNKNOWN INDICATION
  5. ESTRODIAL [Concomitant]
     Indication: PRODUCT USED FOR UNKNOWN INDICATION
  6. DETROL [Concomitant]
     Indication: PRODUCT USED FOR UNKNOWN INDICATION
  7. NEXIUM [Concomitant]
     Indication: PRODUCT USED FOR UNKNOWN INDICATION
  8. MIRAPAX [Concomitant]
     Indication: RESTLESS LEGS SYNDROME
  9. M.V.I. [Concomitant]
     Indication: PRODUCT USED FOR UNKNOWN INDICATION
  10. FISH OIL [Concomitant]
     Indication: PRODUCT USED FOR UNKNOWN INDICATION
  11. VIT C [Concomitant]
     Indication: PRODUCT USED FOR UNKNOWN INDICATION
  12. ASPIRIN [Concomitant]
     Indication: PRODUCT USED FOR UNKNOWN INDICATION

REACTIONS (5)
  - FEELING HOT [None]
  - FLUSHING [None]
  - OEDEMA PERIPHERAL [None]
  - PARAESTHESIA [None]
  - PRURITUS [None]
